FAERS Safety Report 8082225-X (Version None)
Quarter: 2012Q1

REPORT INFORMATION
  Report Type: 
  Country: None (occurrence: None)
  Receive Date: 20120127
  Receipt Date: 20110201
  Transmission Date: 20120608
  Serious: No
  Sender: FDA-Public Use
  Company Number: US-ABBOTT-11P-163-0702165-00

PATIENT
  Sex: Male
  Weight: 71.732 kg

DRUGS (4)
  1. PREDNISONE TAB [Concomitant]
     Indication: PRODUCT USED FOR UNKNOWN INDICATION
     Dosage: 20MG A DAY FOR A WEEK-10MG A DAY FOR A WEEK
     Dates: start: 20110106, end: 20110127
  2. HUMIRA [Suspect]
     Route: 058
     Dates: start: 20100601, end: 20100901
  3. HUMIRA [Suspect]
     Indication: CROHN'S DISEASE
     Route: 058
     Dates: start: 20091119, end: 20100601
  4. KAPIZX/DEXILAMP [Concomitant]
     Indication: GASTROOESOPHAGEAL REFLUX DISEASE

REACTIONS (2)
  - CROHN'S DISEASE [None]
  - INAPPROPRIATE SCHEDULE OF DRUG ADMINISTRATION [None]
